FAERS Safety Report 14924880 (Version 2)
Quarter: 2018Q2

REPORT INFORMATION
  Report Type: Report from Study
  Country: JP (occurrence: JP)
  Receive Date: 20180522
  Receipt Date: 20180621
  Transmission Date: 20180711
  Serious: Yes (Hospitalization)
  Sender: FDA-Public Use
  Company Number: JP-ELI_LILLY_AND_COMPANY-JP201712001465

PATIENT
  Age: 57 Year
  Sex: Female
  Weight: 46 kg

DRUGS (10)
  1. RAMUCIRUMAB [Suspect]
     Active Substance: RAMUCIRUMAB
     Dosage: 280 MG, CYCLICAL
     Route: 042
     Dates: start: 20171018, end: 20171018
  2. CALCIUM LEVOFOLINATE [Concomitant]
     Active Substance: LEVOLEUCOVORIN CALCIUM
     Indication: RECTAL CANCER STAGE IV
     Dosage: 290 MG/M2, CYCLICAL
     Route: 042
     Dates: start: 20170920
  3. RAMUCIRUMAB [Suspect]
     Active Substance: RAMUCIRUMAB
     Indication: RECTAL CANCER STAGE IV
     Dosage: 360 MG, CYCLICAL
     Route: 042
     Dates: start: 20170920, end: 20171004
  4. IRINOTECAN HYDROCHLORIDE. [Concomitant]
     Active Substance: IRINOTECAN HYDROCHLORIDE
     Dosage: 200 MG/M2, UNK
     Route: 042
     Dates: start: 20171122
  5. FLUOROURACIL. [Concomitant]
     Active Substance: FLUOROURACIL
     Dosage: 3500 MG/M2, CYCLICAL
     Route: 041
     Dates: start: 20171018, end: 20171018
  6. RAMUCIRUMAB [Suspect]
     Active Substance: RAMUCIRUMAB
     Dosage: 260 UNK, UNK
     Route: 042
     Dates: start: 20180131
  7. IRINOTECAN HYDROCHLORIDE. [Concomitant]
     Active Substance: IRINOTECAN HYDROCHLORIDE
     Indication: RECTAL CANCER STAGE IV
     Dosage: 200 MG/M2, UNK
     Route: 042
     Dates: start: 20170920, end: 20170920
  8. IRINOTECAN HYDROCHLORIDE. [Concomitant]
     Active Substance: IRINOTECAN HYDROCHLORIDE
     Dosage: 220 MG/M2, CYCLICAL
     Route: 042
     Dates: start: 20171004, end: 20171018
  9. FLUOROURACIL. [Concomitant]
     Active Substance: FLUOROURACIL
     Indication: RECTAL CANCER STAGE IV
     Dosage: 3000 MG/M2, UNK
     Route: 041
     Dates: start: 20170920, end: 20171004
  10. FLUOROURACIL. [Concomitant]
     Active Substance: FLUOROURACIL
     Dosage: 3000 MG/M2, CYCLICAL
     Route: 041
     Dates: start: 20171122

REACTIONS (3)
  - Small intestinal obstruction [Recovering/Resolving]
  - Abdominal pain [Recovering/Resolving]
  - Oophoritis [Recovering/Resolving]

NARRATIVE: CASE EVENT DATE: 20171124
